FAERS Safety Report 21166668 (Version 1)
Quarter: 2022Q3

REPORT INFORMATION
  Report Type: Spontaneous
  Country: US (occurrence: US)
  Receive Date: 20220803
  Receipt Date: 20220803
  Transmission Date: 20221027
  Serious: No
  Sender: FDA-Public Use
  Company Number: US-TEVA-2022-US-2053920

PATIENT
  Age: 22 Year
  Sex: Female

DRUGS (9)
  1. PROPOFOL [Suspect]
     Active Substance: PROPOFOL
     Indication: Sedation
     Route: 065
  2. BAL [Suspect]
     Active Substance: DIMERCAPROL
     Indication: Metal poisoning
     Dosage: 16 MG/KG DAILY;
     Route: 030
  3. FENTANYL [Concomitant]
     Active Substance: FENTANYL
     Indication: Sedation
     Route: 065
  4. ACETAZOLAMIDE [Concomitant]
     Active Substance: ACETAZOLAMIDE
     Indication: Intracranial pressure increased
     Dosage: 2 GRAM DAILY;
     Route: 065
  5. DEXAMETHASONE [Concomitant]
     Active Substance: DEXAMETHASONE
     Indication: Intracranial pressure increased
     Route: 065
  6. MIDAZOLAM [Concomitant]
     Active Substance: MIDAZOLAM
     Indication: Intracranial pressure increased
     Route: 065
  7. Succimer- Chelation therapy [Concomitant]
     Indication: Metal poisoning
     Dosage: DOSAGE: THREE TIMES A DAY
     Route: 048
  8. CISATRACURIUM [Concomitant]
     Active Substance: CISATRACURIUM
     Indication: Intracranial pressure increased
     Route: 065
  9. DIAZEPAM [Concomitant]
     Active Substance: DIAZEPAM
     Indication: Generalised tonic-clonic seizure
     Route: 065

REACTIONS (3)
  - Injection site pain [Unknown]
  - Hypertransaminasaemia [Unknown]
  - Hypertriglyceridaemia [Unknown]
